FAERS Safety Report 10018436 (Version 3)
Quarter: 2014Q2

REPORT INFORMATION
  Report Type: Spontaneous
  Country: US (occurrence: US)
  Receive Date: 20140318
  Receipt Date: 20140603
  Transmission Date: 20141212
  Serious: Yes (Hospitalization, Other)
  Sender: FDA-Public Use
  Company Number: US-BAXTER-2014BAX013044

PATIENT
  Sex: Male

DRUGS (1)
  1. DIANEAL LOW CALCIUM [Suspect]
     Indication: PERITONEAL DIALYSIS
     Route: 033
     Dates: start: 2004

REACTIONS (6)
  - Fall [Recovered/Resolved]
  - Hip fracture [Recovering/Resolving]
  - Gout [Recovering/Resolving]
  - Blood pressure decreased [Unknown]
  - Urinary bladder haemorrhage [Unknown]
  - Fluid overload [Recovered/Resolved]
